FAERS Safety Report 5514224-3 (Version None)
Quarter: 2007Q4

REPORT INFORMATION
  Report Type: 
  Country: None (occurrence: None)
  Receive Date: 20071113
  Receipt Date: 20071101
  Transmission Date: 20080405
  Serious: Yes (Other)
  Sender: FDA-Public Use
  Company Number: JP-ASTRAZENECA-2007SE05579

PATIENT
  Age: 25713 Day
  Sex: Female
  Weight: 39 kg

DRUGS (10)
  1. BLOPRESS TABLETS 4 [Suspect]
     Indication: HYPERTENSION
     Route: 048
  2. KETALAR [Suspect]
     Indication: ANALGESIC THERAPY
     Dosage: UNK
     Route: 042
     Dates: start: 20060622, end: 20060622
  3. MIDAZOLAM HCL [Concomitant]
     Indication: ANAESTHESIA PROCEDURE
     Route: 042
     Dates: start: 20060622, end: 20060622
  4. FENTANYL [Concomitant]
     Indication: ANAESTHESIA PROCEDURE
     Dosage: UNK
     Route: 042
     Dates: start: 20060622, end: 20060622
  5. PROPOFOL [Concomitant]
     Indication: ANAESTHESIA PROCEDURE
     Dosage: UNK
     Route: 042
     Dates: start: 20060622, end: 20060622
  6. LASIX [Concomitant]
     Indication: HYPERTENSION
     Route: 048
  7. ALDACTONE [Concomitant]
     Route: 048
  8. NORVASC [Concomitant]
     Indication: HYPERTENSION
     Route: 048
  9. FERRUM [Concomitant]
     Route: 048
  10. OMEPRAZOLE [Concomitant]
     Route: 048

REACTIONS (2)
  - SWELLING FACE [None]
  - TONGUE OEDEMA [None]
